FAERS Safety Report 4645208-5 (Version None)
Quarter: 2005Q2

REPORT INFORMATION
  Report Type: 
  Country: None (occurrence: None)
  Receive Date: 20050426
  Receipt Date: 20020128
  Transmission Date: 20051028
  Serious: Yes (Hospitalization)
  Sender: FDA-Public Use
  Company Number: JP-GLAXOSMITHKLINE-B0303200A

PATIENT
  Age: 18 Year
  Sex: Male

DRUGS (8)
  1. EPIVIR [Suspect]
     Indication: HIV INFECTION
     Dosage: 300MG PER DAY
     Route: 048
     Dates: start: 19970901
  2. ZIDOVUDINE [Suspect]
     Indication: HIV INFECTION
     Route: 048
     Dates: start: 19970901, end: 20020123
  3. DIDANOSINE [Suspect]
     Indication: HIV INFECTION
     Route: 048
     Dates: start: 19980810, end: 20020123
  4. STAVUDINE [Suspect]
     Indication: HIV INFECTION
     Dosage: 80MG PER DAY
     Route: 048
     Dates: start: 19980803
  5. EFAVIRENZ [Suspect]
     Indication: HIV INFECTION
     Dosage: 600MG PER DAY
     Route: 048
     Dates: start: 20010801, end: 20020123
  6. NELFINAVIR MESYLATE [Concomitant]
     Indication: HIV INFECTION
     Dosage: 2.5G PER DAY
     Route: 048
     Dates: start: 19990215, end: 20010801
  7. KALETRA [Concomitant]
     Indication: HIV INFECTION
     Route: 048
     Dates: start: 20020123
  8. ANTIHEMOPHILIC FACTOR (HUMAN) [Concomitant]
     Indication: FACTOR VIII DEFICIENCY
     Route: 042

REACTIONS (3)
  - HEPATIC FUNCTION ABNORMAL [None]
  - HEPATIC STEATOSIS [None]
  - HEPATITIS C [None]
